FAERS Safety Report 15670491 (Version 1)
Quarter: 2018Q4

REPORT INFORMATION
  Report Type: Spontaneous
  Country: UA (occurrence: UA)
  Receive Date: 20181129
  Receipt Date: 20181129
  Transmission Date: 20190205
  Serious: Yes (Death, Other)
  Sender: FDA-Public Use
  Company Number: UA-TAKEDA-2018TUS034242

PATIENT
  Sex: Male

DRUGS (1)
  1. ICLUSIG [Suspect]
     Active Substance: PONATINIB
     Indication: CHRONIC MYELOID LEUKAEMIA
     Dosage: 45 MG, UNK
     Route: 048

REACTIONS (1)
  - Chronic myeloid leukaemia transformation [Fatal]
